FAERS Safety Report 5972731-3 (Version None)
Quarter: 2008Q4

REPORT INFORMATION
  Report Type: 
  Country: None (occurrence: None)
  Receive Date: 20081201
  Receipt Date: 20081120
  Transmission Date: 20090506
  Serious: Yes (Other)
  Sender: FDA-Public Use
  Company Number: US-WYE-H06932008

PATIENT
  Sex: Male

DRUGS (5)
  1. MYLOTARG [Suspect]
     Indication: ACUTE MYELOID LEUKAEMIA
     Dosage: NOT PROVIDED
     Route: 042
     Dates: start: 20080716, end: 20080716
  2. CARVEDILOL [Concomitant]
  3. PREVACID [Concomitant]
  4. VORICONAZOLE [Suspect]
     Dosage: NOT PROVIDED
  5. MEROPENEM [Concomitant]

REACTIONS (2)
  - ALANINE AMINOTRANSFERASE INCREASED [None]
  - ASPARTATE AMINOTRANSFERASE INCREASED [None]
